FAERS Safety Report 8535297-X (Version None)
Quarter: 2012Q3

REPORT INFORMATION
  Report Type: 
  Country: None (occurrence: None)
  Receive Date: 20120725
  Receipt Date: 20120714
  Transmission Date: 20120928
  Serious: Yes (Other)
  Sender: FDA-Public Use
  Company Number: TN-PAR PHARMACEUTICAL, INC-2012SCPR004509

PATIENT

DRUGS (1)
  1. CIPROFLOXACIN EXTENDED RELEASE [Suspect]
     Indication: PYELONEPHRITIS ACUTE
     Dosage: 1000 MG, / DAY
     Route: 065

REACTIONS (3)
  - RHABDOMYOLYSIS [None]
  - RENAL FAILURE ACUTE [None]
  - NEPHRITIS ALLERGIC [None]
